FAERS Safety Report 10758024 (Version 4)
Quarter: 2015Q4

REPORT INFORMATION
  Report Type: Spontaneous
  Country: US (occurrence: US)
  Receive Date: 20150203
  Receipt Date: 20151218
  Transmission Date: 20160304
  Serious: Yes (Hospitalization, Other)
  Sender: FDA-Public Use
  Company Number: US-009507513-1502USA000576

PATIENT
  Sex: Female
  Weight: 77.55 kg

DRUGS (6)
  1. FOSAMAX PLUS D [Suspect]
     Active Substance: ALENDRONATE SODIUM\CHOLECALCIFEROL
     Indication: OSTEOPENIA
     Dosage: 70 MG, QW
     Route: 048
     Dates: start: 200606, end: 200810
  2. ATENOLOL. [Concomitant]
     Active Substance: ATENOLOL
     Indication: CARDIAC DISORDER
     Dosage: 50 MG, UNK
     Route: 065
     Dates: start: 2002
  3. ACIPHEX [Concomitant]
     Active Substance: RABEPRAZOLE SODIUM
     Indication: PRODUCT USED FOR UNKNOWN INDICATION
     Dosage: UNK UNK, UNKNOWN
     Route: 065
     Dates: start: 2005
  4. METHOTREXATE [Concomitant]
     Active Substance: METHOTREXATE
     Indication: RHEUMATOID ARTHRITIS
     Dosage: 2.5 MG, UNKNOWN
     Route: 030
     Dates: start: 1983
  5. FOSAMAX [Suspect]
     Active Substance: ALENDRONATE SODIUM
     Indication: OSTEOPENIA
     Dosage: 70 MG, QW
     Route: 048
     Dates: start: 20050524, end: 200606
  6. ALENDRONATE SODIUM. [Suspect]
     Active Substance: ALENDRONATE SODIUM
     Indication: OSTEOPENIA
     Dosage: 70 MG, QW
     Route: 048
     Dates: start: 20081009, end: 20120802

REACTIONS (32)
  - Hip fracture [Unknown]
  - Diabetic neuropathy [Unknown]
  - Respiratory disorder [Unknown]
  - Asthma [Unknown]
  - Fall [Unknown]
  - Bradycardia [Unknown]
  - Type 2 diabetes mellitus [Not Recovered/Not Resolved]
  - Chronic obstructive pulmonary disease [Unknown]
  - Appendix disorder [Unknown]
  - Bundle branch block left [Unknown]
  - Epilepsy [Unknown]
  - Ischaemic cardiomyopathy [Unknown]
  - Depression [Unknown]
  - Arthralgia [Unknown]
  - Hiatus hernia [Unknown]
  - Obesity [Unknown]
  - Coronary artery disease [Unknown]
  - Femur fracture [Unknown]
  - Femur fracture [Unknown]
  - Anaemia [Unknown]
  - Irritable bowel syndrome [Unknown]
  - Atrioventricular block first degree [Unknown]
  - Hypertension [Not Recovered/Not Resolved]
  - Blood cholesterol increased [Unknown]
  - Neuropathy peripheral [Unknown]
  - Gallbladder disorder [Unknown]
  - Bone graft [Unknown]
  - Haemorrhagic anaemia [Unknown]
  - Gastrooesophageal reflux disease [Unknown]
  - Hyperlipidaemia [Unknown]
  - Anxiety disorder [Unknown]
  - Urinary tract infection [Unknown]

NARRATIVE: CASE EVENT DATE: 2005
